FAERS Safety Report 16672558 (Version 2)
Quarter: 2019Q3

REPORT INFORMATION
  Report Type: Spontaneous
  Country: CN (occurrence: CN)
  Receive Date: 20190806
  Receipt Date: 20190807
  Transmission Date: 20191004
  Serious: Yes (Other)
  Sender: FDA-Public Use
  Company Number: CN-PFIZER INC-2019327164

PATIENT
  Age: 87 Year
  Sex: Male

DRUGS (3)
  1. FLUCONAZOLE. [Interacting]
     Active Substance: FLUCONAZOLE
     Indication: INFECTION
     Dosage: 0.4 G, 1X/DAY
     Route: 041
  2. TIGECYCLINE. [Suspect]
     Active Substance: TIGECYCLINE
     Indication: INFECTION
     Dosage: 50 MG, 2X/DAY (PER 12H)
     Route: 041
  3. ORNIDAZOLE [Interacting]
     Active Substance: ORNIDAZOLE
     Indication: INFECTION
     Dosage: 500 MG, 2X/DAY(PER 12H)
     Route: 041

REACTIONS (2)
  - Toxic epidermal necrolysis [Unknown]
  - Drug interaction [Unknown]
